FAERS Safety Report 5216644-3 (Version None)
Quarter: 2007Q1

REPORT INFORMATION
  Report Type: 
  Country: None (occurrence: None)
  Receive Date: 20061130
  Receipt Date: 20060831
  Transmission Date: 20070707
  Serious: Yes (Hospitalization, Other)
  Sender: FDA-Public Use
  Company Number: US200606005570

PATIENT
  Age: 26 Year
  Sex: Male
  Weight: 94.3 kg

DRUGS (7)
  1. ZYPREXA [Suspect]
     Dosage: SEE IMAGE
     Dates: end: 20030901
  2. ZYPREXA [Suspect]
     Dosage: SEE IMAGE
     Dates: start: 19991001
  3. PROZAC [Concomitant]
  4. ABILIFY [Concomitant]
  5. VITAMINS NOS (VITAMINS NOS) [Concomitant]
  6. RISPERIDONE [Concomitant]
  7. KLONOPIN [Concomitant]

REACTIONS (10)
  - BLOOD CHOLESTEROL INCREASED [None]
  - BLOOD TRIGLYCERIDES INCREASED [None]
  - CHEST PAIN [None]
  - DIABETES MELLITUS [None]
  - DIABETIC COMA [None]
  - DIABETIC KETOACIDOSIS [None]
  - HYPERTENSION [None]
  - OBESITY [None]
  - PANCREATITIS [None]
  - POLYURIA [None]
